FAERS Safety Report 9671792 (Version 1)
Quarter: 2013Q4

REPORT INFORMATION
  Report Type: Spontaneous
  Country: CN (occurrence: CN)
  Receive Date: 20131106
  Receipt Date: 20131106
  Transmission Date: 20140711
  Serious: Yes (Hospitalization)
  Sender: FDA-Public Use
  Company Number: CN-BAYER-2013-135290

PATIENT
  Sex: 0

DRUGS (1)
  1. ULTRAVIST [Suspect]
     Indication: COMPUTERISED TOMOGRAM
     Dosage: UNK

REACTIONS (3)
  - Myocardial infarction [Recovering/Resolving]
  - Shock [Recovering/Resolving]
  - Blood pressure immeasurable [Recovering/Resolving]
